FAERS Safety Report 7463218-X (Version None)
Quarter: 2011Q2

REPORT INFORMATION
  Report Type: 
  Country: None (occurrence: None)
  Receive Date: 20110506
  Receipt Date: 20110505
  Transmission Date: 20111010
  Serious: Yes (Other)
  Sender: FDA-Public Use
  Company Number: VE-PFIZER INC-2011088798

PATIENT
  Age: 74 Year
  Sex: Female

DRUGS (5)
  1. ADALAT [Concomitant]
     Indication: HYPERTENSION
     Dosage: 30 MG, 1X/DAY
     Route: 048
  2. LIPITOR [Suspect]
     Indication: HYPERCHOLESTEROLAEMIA
     Dosage: 20 MG, 1X/DAY
     Route: 048
  3. ENALAPRIL [Concomitant]
     Indication: HYPERTENSION
     Dosage: 10 MG, 1X/DAY
     Route: 048
  4. GLUCOFAGE [Concomitant]
     Indication: DIABETES MELLITUS
     Dosage: 850 MG, 1X/DAY
     Route: 048
  5. AMARYL [Concomitant]
     Indication: DIABETES MELLITUS
     Dosage: 4 MG, 2X/DAY
     Route: 048

REACTIONS (3)
  - HIP ARTHROPLASTY [None]
  - FALL [None]
  - HIP FRACTURE [None]
